FAERS Safety Report 7407400-6 (Version None)
Quarter: 2011Q2

REPORT INFORMATION
  Report Type: 
  Country: None (occurrence: None)
  Receive Date: 20110411
  Receipt Date: 20110406
  Transmission Date: 20111010
  Serious: Yes (Hospitalization)
  Sender: FDA-Public Use
  Company Number: US-GILEAD-2010-0034734

PATIENT
  Sex: Male

DRUGS (16)
  1. QVAR 40 [Concomitant]
  2. OXYGEN [Concomitant]
  3. FOLIC ACID [Concomitant]
  4. LETAIRIS [Suspect]
     Indication: CONNECTIVE TISSUE DISORDER
  5. GEMFIBROZIL [Concomitant]
  6. ASPIRIN [Concomitant]
  7. OXYCODONE/ACETAMINOPHEN [Concomitant]
  8. LASIX [Concomitant]
  9. OMEPRAZOLE [Concomitant]
  10. DIGOXIN [Concomitant]
  11. SPIRIVA [Concomitant]
  12. PROAIR HFA [Concomitant]
  13. GLIPIZIDE [Concomitant]
  14. PROCHLORPERAZINE MALEATE [Concomitant]
  15. ALPRAZOLAM [Concomitant]
  16. LETAIRIS [Suspect]
     Indication: PULMONARY HYPERTENSION
     Route: 048
     Dates: start: 20101028

REACTIONS (2)
  - BLOOD COUNT ABNORMAL [None]
  - DEHYDRATION [None]
